FAERS Safety Report 6129848-2 (Version None)
Quarter: 2009Q1

REPORT INFORMATION
  Report Type: 
  Country: None (occurrence: None)
  Receive Date: 20090323
  Receipt Date: 20090323
  Transmission Date: 20090719
  Serious: No
  Sender: FDA-Public Use
  Company Number: None

PATIENT
  Sex: Female
  Weight: 68.0396 kg

DRUGS (1)
  1. MIRENA [Suspect]
     Indication: CONTRACEPTION
     Dosage: INTRA-UTERI
     Route: 015
     Dates: start: 20090101, end: 20090321

REACTIONS (3)
  - ABDOMINAL PAIN [None]
  - BACK PAIN [None]
  - GENITAL HAEMORRHAGE [None]
